FAERS Safety Report 5029585-1 (Version None)
Quarter: 2006Q2

REPORT INFORMATION
  Report Type: 
  Country: None (occurrence: None)
  Receive Date: 20060620
  Receipt Date: 20060609
  Transmission Date: 20061013
  Serious: Yes (Other)
  Sender: FDA-Public Use
  Company Number: PHFR2006GB01960

PATIENT
  Sex: Female

DRUGS (2)
  1. ZAPONEX [Suspect]
     Route: 048
     Dates: start: 20041117
  2. CLOZAPINE [Suspect]
     Route: 048
     Dates: start: 20010701, end: 20041116

REACTIONS (2)
  - METASTASIS [None]
  - OVARIAN CANCER [None]
